FAERS Safety Report 20868531 (Version 6)
Quarter: 2022Q4

REPORT INFORMATION
  Report Type: Report from Study
  Country: US (occurrence: US)
  Receive Date: 20220524
  Receipt Date: 20221022
  Transmission Date: 20230112
  Serious: No
  Sender: FDA-Public Use
  Company Number: US-NOVARTISTESTPH-NVSC2022US118699

PATIENT
  Sex: Female

DRUGS (1)
  1. ENTRESTO [Suspect]
     Active Substance: SACUBITRIL\VALSARTAN
     Indication: Cardiac failure
     Dosage: UNK UNK, BID
     Route: 048
     Dates: start: 20220430

REACTIONS (6)
  - Feeling abnormal [Unknown]
  - Disturbance in attention [Unknown]
  - Mobility decreased [Unknown]
  - Frustration tolerance decreased [Unknown]
  - Blood cholesterol decreased [Unknown]
  - Fatigue [Unknown]
